FAERS Safety Report 7948656-0 (Version None)
Quarter: 2011Q4

REPORT INFORMATION
  Report Type: 
  Country: None (occurrence: None)
  Receive Date: 20111130
  Receipt Date: 20111130
  Transmission Date: 20120403
  Serious: No
  Sender: FDA-Public Use
  Company Number: None

PATIENT
  Age: 54 Year
  Sex: Female
  Weight: 46.72 kg

DRUGS (1)
  1. CHELATED ZINC LOZENGES [Suspect]
     Indication: VIRAL INFECTION
     Dosage: ONE
     Route: 048
     Dates: start: 20100920, end: 20111124

REACTIONS (1)
  - IMPAIRED HEALING [None]
